FAERS Safety Report 21484484 (Version 1)
Quarter: 2022Q4

REPORT INFORMATION
  Report Type: Spontaneous
  Country: DK (occurrence: DK)
  Receive Date: 20221020
  Receipt Date: 20221020
  Transmission Date: 20230113
  Serious: Yes (Hospitalization)
  Sender: FDA-Public Use
  Company Number: None

PATIENT
  Age: 68 Year
  Sex: Female

DRUGS (2)
  1. EPIRUBICIN HYDROCHLORIDE [Suspect]
     Active Substance: EPIRUBICIN HYDROCHLORIDE
     Indication: Breast cancer
     Dosage: DOSAGE: UNKNOWN. DOSE REDUCED ON UNKNOWN DATE BETWEEN 08MAR2019-22MAR2019?STRENGTH: UNKNOWN; THERAPY
     Route: 065
     Dates: start: 20190114
  2. CYCLOPHOSPHAMIDE [Suspect]
     Active Substance: CYCLOPHOSPHAMIDE
     Indication: Breast cancer
     Dosage: DOSAGE: UNKNOWN. DOSE REDUCED ON UNKNOWN DATE BETWEEN 08MAR2019-22MAR2019?STRENGTH: UNKNOWN; THERAPY
     Dates: start: 20190114

REACTIONS (7)
  - Fatigue [Unknown]
  - Malaise [Unknown]
  - Asthenia [Unknown]
  - Cardiac failure [Unknown]
  - Dyspnoea [Unknown]
  - Atrial fibrillation [Unknown]
  - Neutropenia [Unknown]

NARRATIVE: CASE EVENT DATE: 20190308
